FAERS Safety Report 22742246 (Version 4)
Quarter: 2023Q4

REPORT INFORMATION
  Report Type: Report from Study
  Country: AR (occurrence: AR)
  Receive Date: 20230724
  Receipt Date: 20231011
  Transmission Date: 20240110
  Serious: Yes (Hospitalization, Other)
  Sender: FDA-Public Use
  Company Number: AR-002147023-NVSC2023AR006083

PATIENT
  Sex: Female

DRUGS (4)
  1. KISQALI [Suspect]
     Active Substance: RIBOCICLIB
     Indication: Breast cancer metastatic
     Dosage: 600 MG, QD
     Route: 048
     Dates: start: 20221213
  2. KISQALI [Suspect]
     Active Substance: RIBOCICLIB
     Dosage: 600 MG, BID
     Route: 065
     Dates: start: 20221213
  3. KISQALI [Suspect]
     Active Substance: RIBOCICLIB
     Dosage: 200 MG, QD
     Route: 048
     Dates: start: 20221213
  4. LETROZOLE [Suspect]
     Active Substance: LETROZOLE
     Indication: Breast cancer metastatic
     Dosage: 2.5 MG, QD
     Route: 048
     Dates: start: 20221213

REACTIONS (23)
  - Pain [Unknown]
  - Spinal fracture [Unknown]
  - Metastasis [Unknown]
  - Drug ineffective [Unknown]
  - Odynophagia [Unknown]
  - Arthralgia [Unknown]
  - Gait disturbance [Unknown]
  - Lymphadenopathy [Unknown]
  - Neck mass [Unknown]
  - Musculoskeletal chest pain [Unknown]
  - Respiratory disorder [Unknown]
  - Feeling abnormal [Unknown]
  - Intervertebral disc compression [Unknown]
  - Osteoporosis [Unknown]
  - Pain in extremity [Unknown]
  - Muscle spasms [Unknown]
  - Sensation of foreign body [Unknown]
  - Back pain [Unknown]
  - Vomiting [Unknown]
  - Diarrhoea [Recovering/Resolving]
  - Nausea [Unknown]
  - Abdominal pain upper [Unknown]
  - Incorrect dose administered [Unknown]

NARRATIVE: CASE EVENT DATE: 20220101
